FAERS Safety Report 11684261 (Version 3)
Quarter: 2015Q4

REPORT INFORMATION
  Report Type: Spontaneous
  Country: DE (occurrence: DE)
  Receive Date: 20151029
  Receipt Date: 20151214
  Transmission Date: 20160304
  Serious: Yes (Death, Hospitalization, Other)
  Sender: FDA-Public Use
  Company Number: DE-ASTELLAS-2015US037715

PATIENT
  Sex: Male

DRUGS (4)
  1. XGEVA [Concomitant]
     Active Substance: DENOSUMAB
     Indication: METASTASES TO BONE
     Route: 058
     Dates: start: 20150309
  2. CALCIGEN D [Concomitant]
     Active Substance: CALCIUM CARBONATE\CHOLECALCIFEROL
     Indication: PROPHYLAXIS
     Dosage: 1000 MG/880 IU MG, ONCE DAILY
     Route: 048
     Dates: start: 20150309
  3. PROFACT [Concomitant]
     Active Substance: BUSERELIN ACETATE
     Indication: PROSTATE CANCER METASTATIC
     Dosage: UNK UNK, EVERY 3 MONTHS
     Route: 058
     Dates: start: 20141017
  4. XTANDI [Suspect]
     Active Substance: ENZALUTAMIDE
     Indication: PROSTATE CANCER METASTATIC
     Route: 048
     Dates: start: 20150806, end: 20151006

REACTIONS (10)
  - Pancytopenia [Not Recovered/Not Resolved]
  - Prostatic specific antigen increased [Unknown]
  - Drug effect incomplete [Unknown]
  - Febrile neutropenia [Unknown]
  - Epistaxis [Unknown]
  - Malignant neoplasm progression [Unknown]
  - Thrombocytopenia [Fatal]
  - Gastrointestinal haemorrhage [Fatal]
  - Fatigue [Not Recovered/Not Resolved]
  - Pneumonia [Fatal]

NARRATIVE: CASE EVENT DATE: 20150910
